FAERS Safety Report 5528088-5 (Version None)
Quarter: 2007Q4

REPORT INFORMATION
  Report Type: 
  Country: None (occurrence: None)
  Receive Date: 20071126
  Receipt Date: 20071126
  Transmission Date: 20080405
  Serious: Yes (Life-Threatening, Hospitalization)
  Sender: FDA-Public Use
  Company Number: None

PATIENT
  Sex: Female
  Weight: 57.6068 kg

DRUGS (1)
  1. CEFOXITIN [Suspect]
     Indication: HAEMORRHOID OPERATION
     Dosage: 2 GM IVPB ONE TIME IV
     Route: 042
     Dates: start: 20071106, end: 20071106

REACTIONS (8)
  - CHEST DISCOMFORT [None]
  - HEART RATE DECREASED [None]
  - HYPOTENSION [None]
  - MYOCARDIAL INFARCTION [None]
  - POST PROCEDURAL COMPLICATION [None]
  - PROCEDURAL COMPLICATION [None]
  - PRURITUS [None]
  - RASH [None]
